FAERS Safety Report 23887152 (Version 1)
Quarter: 2024Q2

REPORT INFORMATION
  Report Type: Spontaneous
  Country: US (occurrence: None)
  Receive Date: 20240523
  Receipt Date: 20240523
  Transmission Date: 20240716
  Serious: No
  Sender: FDA-Public Use
  Company Number: US-IMP-2024000269

PATIENT
  Age: 74 Year
  Sex: Male
  Weight: 62.59 kg

DRUGS (3)
  1. VEVYE [Suspect]
     Active Substance: CYCLOSPORINE
     Indication: Conjunctivochalasis
     Dosage: 1 DROP EACH EYE TWICE A DAY
     Route: 047
     Dates: start: 20240417
  2. XDEMVY [Concomitant]
     Active Substance: LOTILANER
     Indication: Product used for unknown indication
  3. VITAMINS [Concomitant]
     Active Substance: VITAMINS
     Indication: Product used for unknown indication

REACTIONS (1)
  - Product use issue [Unknown]

NARRATIVE: CASE EVENT DATE: 20240101
